FAERS Safety Report 20359067 (Version 1)
Quarter: 2022Q1

REPORT INFORMATION
  Report Type: Spontaneous
  Country: AU (occurrence: AU)
  Receive Date: 20220120
  Receipt Date: 20220120
  Transmission Date: 20220423
  Serious: Yes (Other)
  Sender: FDA-Public Use
  Company Number: AU-009507513-2201AUS004134

PATIENT
  Age: 62 Year
  Sex: Male

DRUGS (12)
  1. JANUMET [Suspect]
     Active Substance: METFORMIN HYDROCHLORIDE\SITAGLIPTIN PHOSPHATE
     Dosage: UNK
     Route: 048
  2. POSACONAZOLE [Suspect]
     Active Substance: POSACONAZOLE
  3. AZACITIDINE [Suspect]
     Active Substance: AZACITIDINE
  4. ESOMEPRAZOLE [Suspect]
     Active Substance: ESOMEPRAZOLE
  5. FENTANYL [Suspect]
     Active Substance: FENTANYL
  6. FILGRASTIM [Suspect]
     Active Substance: FILGRASTIM
  7. MIDAZOLAM [Suspect]
     Active Substance: MIDAZOLAM
  8. ONDANSETRON [Suspect]
     Active Substance: ONDANSETRON
  9. OXYCODONE [Suspect]
     Active Substance: OXYCODONE
  10. ACETAMINOPHEN [Suspect]
     Active Substance: ACETAMINOPHEN
  11. VALACYCLOVIR HYDROCHLORIDE [Suspect]
     Active Substance: VALACYCLOVIR HYDROCHLORIDE
  12. VENETOCLAX [Suspect]
     Active Substance: VENETOCLAX

REACTIONS (1)
  - Febrile neutropenia [Recovered/Resolved]
